FAERS Safety Report 8261700-9 (Version None)
Quarter: 2012Q2

REPORT INFORMATION
  Report Type: 
  Country: None (occurrence: None)
  Receive Date: 20120402
  Receipt Date: 20120320
  Transmission Date: 20120825
  Serious: Yes (Other)
  Sender: FDA-Public Use
  Company Number: HA12-087-AE

PATIENT
  Age: 74 Year
  Sex: Female
  Weight: 72.5755 kg

DRUGS (5)
  1. CALCIUM CARBONATE [Concomitant]
  2. VITAMIN B-12 [Concomitant]
  3. SULFAMETHOXAZOLE AND TRIMETHOPRIM [Suspect]
     Indication: BRONCHITIS
     Dosage: 1 TABLET, BID, ORAL
     Route: 048
     Dates: start: 20120308, end: 20120319
  4. SULFAMETHOXAZOLE AND TRIMETHOPRIM [Suspect]
     Indication: EAR INFECTION
     Dosage: 1 TABLET, BID, ORAL
     Route: 048
     Dates: start: 20120308, end: 20120319
  5. ASPIRIN [Concomitant]

REACTIONS (12)
  - HIATUS HERNIA [None]
  - VOMITING [None]
  - DIARRHOEA [None]
  - PANCREATIC CYST [None]
  - DIVERTICULUM INTESTINAL [None]
  - DIZZINESS [None]
  - RENAL CYST [None]
  - OVARIAN CYST [None]
  - MALAISE [None]
  - MUSCULOSKELETAL STIFFNESS [None]
  - HEADACHE [None]
  - TREMOR [None]
